FAERS Safety Report 8368212-2 (Version None)
Quarter: 2012Q2

REPORT INFORMATION
  Report Type: 
  Country: None (occurrence: None)
  Receive Date: 20120517
  Receipt Date: 20120507
  Transmission Date: 20120825
  Serious: Yes (Other)
  Sender: FDA-Public Use
  Company Number: PHHY2012JP040040

PATIENT
  Age: 80 Year
  Sex: Female

DRUGS (1)
  1. AMANTADINE HCL [Suspect]
     Dosage: 100 MG, DAILY
     Route: 048

REACTIONS (6)
  - ALTERED STATE OF CONSCIOUSNESS [None]
  - RENAL IMPAIRMENT [None]
  - DYSKINESIA [None]
  - CEREBRAL INFARCTION [None]
  - DRUG LEVEL INCREASED [None]
  - CEREBELLAR ATROPHY [None]
